FAERS Safety Report 10097948 (Version 2)
Quarter: 2014Q2

REPORT INFORMATION
  Report Type: Spontaneous
  Country: CN (occurrence: CN)
  Receive Date: 20140423
  Receipt Date: 20140428
  Transmission Date: 20141212
  Serious: Yes (Disabling)
  Sender: FDA-Public Use
  Company Number: CN-PFIZER INC-2014108448

PATIENT
  Age: 68 Year
  Sex: Male
  Weight: 97.5 kg

DRUGS (3)
  1. DIFLUCAN [Suspect]
     Indication: LUNG INFECTION
     Dosage: 0.2 G, 1X/DAY
     Route: 041
     Dates: start: 20130618, end: 20130620
  2. SULPERAZON [Suspect]
     Indication: LUNG INFECTION
     Dosage: 1.5 G EVERY 8 HOURS
     Route: 042
     Dates: start: 20130618, end: 20130620
  3. CIPROFLOXACIN [Suspect]
     Indication: LUNG INFECTION
     Dosage: 0.4 G, ONCE DAILY
     Route: 041
     Dates: start: 20130618, end: 20130620

REACTIONS (1)
  - Hepatic enzyme increased [Recovered/Resolved]
